FAERS Safety Report 9366401 (Version 1)
Quarter: 2013Q2

REPORT INFORMATION
  Report Type: Spontaneous
  Country: FR (occurrence: FR)
  Receive Date: 20130625
  Receipt Date: 20130625
  Transmission Date: 20140414
  Serious: Yes (Other)
  Sender: FDA-Public Use
  Company Number: FR-009507513-1306FRA007171

PATIENT
  Age: 77 Year
  Sex: Female

DRUGS (3)
  1. FOSAVANCE [Suspect]
     Indication: OSTEOPOROSIS
     Dosage: UNK UNK, QW
     Route: 048
     Dates: start: 2007, end: 20110725
  2. OROCAL D3 [Concomitant]
  3. COAPROVEL [Concomitant]

REACTIONS (1)
  - Bone fissure [Recovering/Resolving]
